FAERS Safety Report 21644325 (Version 1)
Quarter: 2022Q4

REPORT INFORMATION
  Report Type: Spontaneous
  Country: US (occurrence: None)
  Receive Date: 20221125
  Receipt Date: 20221125
  Transmission Date: 20230112
  Serious: No
  Sender: FDA-Public Use
  Company Number: 2022A364335

PATIENT
  Sex: Female

DRUGS (2)
  1. FASLODEX [Suspect]
     Active Substance: FULVESTRANT
     Dosage: UNKNOWN
     Route: 030
  2. IBRANCE [Suspect]
     Active Substance: PALBOCICLIB
     Dosage: 100MG DAILY 3 WEEKS THEN 1 WEEK OFF
     Route: 048
     Dates: start: 20220806

REACTIONS (6)
  - Nausea [Unknown]
  - Asthma [Unknown]
  - Pain [Unknown]
  - Feeling abnormal [Unknown]
  - Sinusitis [Unknown]
  - Illness [Unknown]
